FAERS Safety Report 19784386 (Version 1)
Quarter: 2021Q3

REPORT INFORMATION
  Report Type: Other
  Country: CA (occurrence: CA)
  Receive Date: 20210903
  Receipt Date: 20210903
  Transmission Date: 20211014
  Serious: Yes (Other)
  Sender: FDA-Public Use
  Company Number: CA-APOTEX-2021AP042428

PATIENT
  Age: 50 Year
  Sex: Female

DRUGS (1)
  1. ACETAMINOPHEN. [Suspect]
     Active Substance: ACETAMINOPHEN
     Indication: PRODUCT USED FOR UNKNOWN INDICATION
     Dosage: UNK
     Route: 045

REACTIONS (5)
  - Aphonia [Unknown]
  - Dysphonia [Unknown]
  - Pharyngeal stenosis [Unknown]
  - Inflammation [Unknown]
  - Drug abuse [Unknown]
